FAERS Safety Report 25741294 (Version 1)
Quarter: 2025Q3

REPORT INFORMATION
  Report Type: Spontaneous
  Country: US (occurrence: US)
  Receive Date: 20250829
  Receipt Date: 20250829
  Transmission Date: 20251021
  Serious: Yes (Other)
  Sender: NOVO NORDISK
  Company Number: US-NOVOPROD-1508237

PATIENT

DRUGS (1)
  1. WEGOVY [Suspect]
     Active Substance: SEMAGLUTIDE
     Indication: Ill-defined disorder

REACTIONS (4)
  - Myocardial infarction [Unknown]
  - Coronary artery bypass [Unknown]
  - Arterial stent insertion [Unknown]
  - Off label use [Unknown]
